FAERS Safety Report 11363777 (Version 3)
Quarter: 2016Q1

REPORT INFORMATION
  Report Type: Spontaneous
  Country: JP (occurrence: JP)
  Receive Date: 20150811
  Receipt Date: 20160328
  Transmission Date: 20160525
  Serious: Yes (Death, Other)
  Sender: FDA-Public Use
  Company Number: JP-BRISTOL-MYERS SQUIBB COMPANY-BMS-2015-039438

PATIENT
  Age: 70 Year
  Sex: Male

DRUGS (1)
  1. ERBITUX [Suspect]
     Active Substance: CETUXIMAB
     Indication: HEAD AND NECK CANCER
     Dosage: UNK
     Route: 041
     Dates: start: 201407

REACTIONS (5)
  - Platelet count decreased [Not Recovered/Not Resolved]
  - Interstitial lung disease [Fatal]
  - Sepsis [Fatal]
  - Respiratory failure [Fatal]
  - Enterocolitis [Unknown]

NARRATIVE: CASE EVENT DATE: 201409
